FAERS Safety Report 11433325 (Version 3)
Quarter: 2016Q3

REPORT INFORMATION
  Report Type: Report from Study
  Country: CA (occurrence: CA)
  Receive Date: 20150830
  Receipt Date: 20160716
  Transmission Date: 20161109
  Serious: Yes (Other)
  Sender: FDA-Public Use
  Company Number: CA-AMGEN-CANSL2015066442

PATIENT
  Age: 76 Year
  Sex: Female

DRUGS (37)
  1. HYDRODIURIL [Concomitant]
     Active Substance: HYDROCHLOROTHIAZIDE
     Dosage: UNK
  2. QVAR [Concomitant]
     Active Substance: BECLOMETHASONE DIPROPIONATE
     Dosage: 100 MUG, BID MORNING AND EVENING
     Dates: start: 20150508
  3. ASPIRIN. [Concomitant]
     Active Substance: ASPIRIN
     Dosage: 81 MG, QD AT BREAKFAST
     Dates: start: 20150508
  4. AMITRIPTYLINE [Concomitant]
     Active Substance: AMITRIPTYLINE
     Dosage: 25 MG, QD 30 MINS BEFORE BEDTIME
     Dates: start: 20150706
  5. APO HYDRO [Concomitant]
     Indication: POLYURIA
     Dosage: 12.5 MG, QD AT BREAKFAST
     Dates: start: 20150706
  6. VITAMINS [Concomitant]
     Active Substance: VITAMINS
     Dosage: UNK
  7. LOTEMAX [Concomitant]
     Active Substance: LOTEPREDNOL ETABONATE
     Dosage: 0.5 %, QID
     Dates: start: 20150623
  8. VITAMIN E [Concomitant]
     Active Substance: .ALPHA.-TOCOPHEROL
     Dosage: UNK UNK, BID
  9. PROLIA [Suspect]
     Active Substance: DENOSUMAB
     Indication: KYPHOSIS
     Dosage: UNK, Q6MO
     Route: 058
     Dates: start: 20150623
  10. EFFEXOR [Concomitant]
     Active Substance: VENLAFAXINE HYDROCHLORIDE
     Dosage: 75 MG, QD AT BREAKFAST
     Dates: start: 20150706
  11. PREVACID [Concomitant]
     Active Substance: LANSOPRAZOLE
     Dosage: 30 MG, QD 30 MINS BEFORE BREAKFAST
     Dates: start: 20150706
  12. RIVOTRIL [Concomitant]
     Active Substance: CLONAZEPAM
     Dosage: 0.5 MG, AS NECESSARY (TABLET 3X/DAY)
     Dates: start: 20150706
  13. VOLTAREN [Concomitant]
     Active Substance: DICLOFENAC SODIUM
     Indication: PAIN
     Dosage: 3 TO 4X/DAY IF PAIN
     Dates: start: 20150706
  14. JAMP VITAMIN D [Concomitant]
     Dosage: 10000 IU, QWK
     Dates: start: 20150706, end: 201601
  15. RESTASIS [Concomitant]
     Active Substance: CYCLOSPORINE
     Indication: CATARACT
     Dosage: 0.4 ML (39X0.4 ML) 0.05%, BID
     Dates: start: 20150706
  16. MONOCOR [Concomitant]
     Active Substance: BISOPROLOL FUMARATE
     Dosage: 5 MG, BID
  17. BISOPROLOL [Concomitant]
     Active Substance: BISOPROLOL
  18. PROLIA [Suspect]
     Active Substance: DENOSUMAB
     Indication: OSTEOPOROSIS POSTMENOPAUSAL
     Dosage: 60 MG/ML, Q6MO
     Route: 058
     Dates: start: 20141224
  19. ELAVIL [Concomitant]
     Active Substance: AMITRIPTYLINE HYDROCHLORIDE
  20. PROLIA [Suspect]
     Active Substance: DENOSUMAB
     Indication: OSTEOARTHRITIS
  21. CLINDAMYCIN [Concomitant]
     Active Substance: CLINDAMYCIN\CLINDAMYCIN PHOSPHATE
     Dosage: 300 MG, QID AFTER MEALSA ND AT BEDTIME
     Dates: start: 20150611
  22. SYSTANE VITAMIN OMEGA 3 SUPPLEMENT [Concomitant]
     Dosage: UNK UNK, BID AT BREAKFAST AND DINNER
     Dates: start: 20150611
  23. EZETROL [Concomitant]
     Active Substance: EZETIMIBE
     Dosage: 10 MG, QD, AT BEDTIME
     Dates: start: 20141211
  24. HYDROCHLOROTHIAZIDE. [Concomitant]
     Active Substance: HYDROCHLOROTHIAZIDE
  25. PRO-BISOPROLOL [Concomitant]
     Dosage: 5 MG, BID MORNING AND AFTERNOON
     Dates: start: 20150706
  26. SYNTHROID [Concomitant]
     Active Substance: LEVOTHYROXINE SODIUM
     Dosage: 0.075 MG, QD MORNING BEFORE BREAKFAST
     Dates: start: 20150706
  27. SYSTANE (HYPROMELLOSE 2910 (4000 MPA.S)) [Concomitant]
     Active Substance: HYPROMELLOSE 2910 (4000 MPA.S)
     Dosage: UNK UNK, QD
     Dates: start: 20150611
  28. OMEGA 3 [Concomitant]
     Active Substance: OMEGA-3 FATTY ACIDS
     Dosage: UNK
  29. LIPITOR [Concomitant]
     Active Substance: ATORVASTATIN CALCIUM
     Dosage: 80 MG, QD
     Dates: start: 20150706
  30. ARTANE [Concomitant]
     Active Substance: TRIHEXYPHENIDYL HYDROCHLORIDE
     Dosage: 2 MG, JOUR
  31. CEPHALEXIN. [Concomitant]
     Active Substance: CEPHALEXIN
     Dosage: 500 MG, TID
  32. TRIHEXYPHENIDYL [Concomitant]
     Active Substance: TRIHEXYPHENIDYL
     Dosage: 2 MG, TID IF NEEDED AT NIGHT
     Dates: start: 20150706
  33. TYLENOL [Concomitant]
     Active Substance: ACETAMINOPHEN
     Dosage: 500 MG, AS NECESSARY
     Dates: start: 20150508
  34. ACTONEL [Concomitant]
     Active Substance: RISEDRONATE SODIUM
     Dosage: 35 MG, QWK MINS BEFORE BREAKFAST
     Dates: start: 20141126
  35. CYCLOBENZAPRINE [Concomitant]
     Active Substance: CYCLOBENZAPRINE
     Dosage: 10 MG, QD
     Dates: start: 20141126
  36. CELEBREX [Concomitant]
     Active Substance: CELECOXIB
     Indication: PAIN
     Dosage: 100 MG, BID
     Dates: start: 20131009
  37. NASACORT [Concomitant]
     Active Substance: TRIAMCINOLONE ACETONIDE
     Dosage: 55 MUG, BID
     Dates: start: 20130831

REACTIONS (18)
  - Tooth disorder [Unknown]
  - Pain [Recovered/Resolved]
  - Neck pain [Unknown]
  - Peripheral swelling [Unknown]
  - Rash [Unknown]
  - Arthritis [Unknown]
  - Hot flush [Unknown]
  - Wrist fracture [Unknown]
  - Renal failure [Unknown]
  - Spinal pain [Unknown]
  - Cellulitis [Unknown]
  - Pelvic pain [Unknown]
  - Erythema [Recovered/Resolved]
  - Fatigue [Recovering/Resolving]
  - Back pain [Not Recovered/Not Resolved]
  - Hyperhidrosis [Unknown]
  - Pain in extremity [Recovered/Resolved]
  - Arthralgia [Unknown]

NARRATIVE: CASE EVENT DATE: 201412
